FAERS Safety Report 4642257-8 (Version None)
Quarter: 2005Q2

REPORT INFORMATION
  Report Type: 
  Country: None (occurrence: None)
  Receive Date: 20050421
  Receipt Date: 20050421
  Transmission Date: 20051028
  Serious: No
  Sender: FDA-Public Use
  Company Number: None

PATIENT
  Age: 79 Year
  Sex: Male
  Weight: 77 kg

DRUGS (2)
  1. AUGMENTIN '500' [Suspect]
     Indication: INFECTION
     Dosage: 500 MG PO Q 12 H
     Route: 048
     Dates: start: 20050203, end: 20050207
  2. AUGMENTIN '500' [Suspect]
     Indication: SKIN ULCER
     Dosage: 500 MG PO Q 12 H
     Route: 048
     Dates: start: 20050203, end: 20050207

REACTIONS (2)
  - RASH ERYTHEMATOUS [None]
  - RASH PRURITIC [None]
